FAERS Safety Report 4777188-6 (Version None)
Quarter: 2005Q3

REPORT INFORMATION
  Report Type: 
  Country: None (occurrence: None)
  Receive Date: 20050923
  Receipt Date: 20050517
  Transmission Date: 20060218
  Serious: Yes (Hospitalization)
  Sender: FDA-Public Use
  Company Number: FR-ROCHE-404850

PATIENT
  Age: 54 Year
  Sex: Male
  Weight: 80 kg

DRUGS (6)
  1. DACLIZUMAB [Suspect]
     Route: 042
     Dates: start: 20050224, end: 20050224
  2. DACLIZUMAB [Suspect]
     Route: 042
     Dates: start: 20050310, end: 20050310
  3. MYCOPHENOLATE MOFETIL [Suspect]
     Route: 048
     Dates: start: 20050224
  4. CYCLOSPORINE [Suspect]
     Route: 048
     Dates: start: 20050226
  5. CORTANCYL [Suspect]
     Route: 048
     Dates: start: 20050224
  6. CORTANCYL [Suspect]
     Route: 048
     Dates: start: 20050610

REACTIONS (5)
  - DIABETES MELLITUS [None]
  - PYELONEPHRITIS [None]
  - RENAL FAILURE [None]
  - URETERAL NECROSIS [None]
  - URINARY TRACT INFECTION [None]
